FAERS Safety Report 19057349 (Version 3)
Quarter: 2023Q2

REPORT INFORMATION
  Report Type: Spontaneous
  Country: ZA (occurrence: ZA)
  Receive Date: 20210325
  Receipt Date: 20230623
  Transmission Date: 20230721
  Serious: Yes (Other)
  Sender: FDA-Public Use
  Company Number: ZA-PFIZER INC-2021304140

PATIENT
  Age: 70 Year
  Sex: Female
  Weight: 70 kg

DRUGS (7)
  1. AZITHROMYCIN [Suspect]
     Active Substance: AZITHROMYCIN
     Dosage: 100 MG, DAILY
     Dates: start: 1987, end: 2000
  2. METHOTREXATE SODIUM [Suspect]
     Active Substance: METHOTREXATE SODIUM
     Dosage: 20 MG, WEEKLY
     Dates: start: 1990
  3. CHLOROQUINE [Suspect]
     Active Substance: CHLOROQUINE
     Dosage: 200 MG, DAILY
     Dates: start: 2010, end: 2015
  4. PENICILLAMINE [Suspect]
     Active Substance: PENICILLAMINE
     Dosage: UNK
     Dates: start: 1985
  5. ARAVA [Suspect]
     Active Substance: LEFLUNOMIDE
     Dosage: 20 MG, DAILY
     Dates: start: 2010
  6. GOLD [Suspect]
     Active Substance: GOLD
     Dosage: UNK
     Dates: start: 1976
  7. ENBREL [Concomitant]
     Active Substance: ETANERCEPT
     Dosage: 50 MG, WEEKLY
     Route: 058
     Dates: start: 202103

REACTIONS (1)
  - Neuropathy peripheral [Unknown]
